FAERS Safety Report 7701757-4 (Version None)
Quarter: 2011Q3

REPORT INFORMATION
  Report Type: 
  Country: None (occurrence: None)
  Receive Date: 20110822
  Receipt Date: 20110610
  Transmission Date: 20111222
  Serious: No
  Sender: FDA-Public Use
  Company Number: US-BAYER-201026167NA

PATIENT
  Age: 40 Year
  Sex: Female

DRUGS (1)
  1. MIRENA [Suspect]
     Indication: CONTRACEPTION
     Dosage: 20 MCG/24HR, CONT
     Route: 015
     Dates: start: 20100528

REACTIONS (5)
  - PRURITUS [None]
  - UTERINE LEIOMYOMA [None]
  - RASH [None]
  - METRORRHAGIA [None]
  - ABDOMINAL PAIN LOWER [None]
